FAERS Safety Report 6740540-3 (Version None)
Quarter: 2010Q2

REPORT INFORMATION
  Report Type: 
  Country: None (occurrence: None)
  Receive Date: 20100525
  Receipt Date: 20100519
  Transmission Date: 20101027
  Serious: Yes (Hospitalization)
  Sender: FDA-Public Use
  Company Number: IT-GENENTECH-300582

PATIENT
  Sex: Male

DRUGS (7)
  1. MABTHERA [Suspect]
     Indication: NON-HODGKIN'S LYMPHOMA
     Dosage: 594.1 UNK, UNK
     Route: 042
     Dates: start: 20091019, end: 20100308
  2. ARACYTIN [Suspect]
     Indication: NON-HODGKIN'S LYMPHOMA
     Dosage: 1901 MG, UNK
     Route: 042
     Dates: start: 20100310, end: 20100311
  3. DECADRON [Suspect]
     Indication: NON-HODGKIN'S LYMPHOMA
     Dosage: 40 MG, UNK
     Route: 042
     Dates: start: 20100309, end: 20100311
  4. DELTACORTENE [Suspect]
     Indication: NON-HODGKIN'S LYMPHOMA
     Dosage: 37.5 MG, UNK
     Route: 048
     Dates: start: 20100226, end: 20100315
  5. NEULASTA [Concomitant]
     Indication: DRUG USE FOR UNKNOWN INDICATION
     Dosage: 6 MG, UNK
     Route: 058
     Dates: start: 20100312, end: 20100312
  6. ZOFRAN [Concomitant]
     Indication: VOMITING
     Dosage: 8 MG, UNK
     Route: 042
     Dates: start: 20100309, end: 20100311
  7. TAD [Concomitant]
     Indication: DRUG USE FOR UNKNOWN INDICATION
     Dosage: 3105 MG, UNK
     Route: 042
     Dates: start: 20100309, end: 20100309

REACTIONS (3)
  - NEUTROPENIA [None]
  - PNEUMONIA [None]
  - RESPIRATORY FAILURE [None]
